FAERS Safety Report 13677409 (Version 1)
Quarter: 2017Q2

REPORT INFORMATION
  Report Type: Spontaneous
  Country: US (occurrence: US)
  Receive Date: 20170621
  Receipt Date: 20170621
  Transmission Date: 20170830
  Serious: Yes (Hospitalization, Other)
  Sender: FDA-Public Use
  Company Number: None

PATIENT
  Age: 48 Year
  Sex: Female
  Weight: 115 kg

DRUGS (1)
  1. LIRAGLUTIDE 0.6 MG/0.1 ML [Suspect]
     Active Substance: LIRAGLUTIDE
     Indication: TYPE 2 DIABETES MELLITUS
     Route: 058
     Dates: start: 20161001, end: 20170402

REACTIONS (3)
  - Pancreatitis [None]
  - Cholecystitis acute [None]
  - Cholelithiasis [None]

NARRATIVE: CASE EVENT DATE: 20170403
